FAERS Safety Report 12712537 (Version 1)
Quarter: 2016Q3

REPORT INFORMATION
  Report Type: Spontaneous
  Country: US (occurrence: US)
  Receive Date: 20160902
  Receipt Date: 20160902
  Transmission Date: 20161109
  Serious: Yes (Other)
  Sender: FDA-Public Use
  Company Number: US-PFIZER INC-2016380551

PATIENT

DRUGS (2)
  1. LIDOCAINE HCL [Suspect]
     Active Substance: LIDOCAINE HYDROCHLORIDE
     Indication: SPINAL ANAESTHESIA
     Dosage: 5 %, SINGLE (SUBARACHNOID INJECTIONS)
     Route: 037
  2. GLUCOSE [Concomitant]
     Active Substance: DEXTROSE
     Dosage: 7.5 %

REACTIONS (1)
  - Neurotoxicity [Unknown]
